FAERS Safety Report 6893341-X (Version None)
Quarter: 2010Q3

REPORT INFORMATION
  Report Type: 
  Country: None (occurrence: None)
  Receive Date: 20100731
  Receipt Date: 20090814
  Transmission Date: 20110219
  Serious: No
  Sender: FDA-Public Use
  Company Number: US-PFIZER INC-2007027348

PATIENT
  Sex: Male
  Weight: 86.168 kg

DRUGS (8)
  1. LIPITOR [Suspect]
     Indication: BLOOD CHOLESTEROL INCREASED
     Dosage: 20 MG, 1X/DAY
     Dates: start: 20020101
  2. COMBIVENT [Concomitant]
     Dosage: UNK
     Dates: start: 19870101
  3. ZYRTEC [Concomitant]
     Dosage: UNK
     Dates: start: 20000101
  4. ZETIA [Concomitant]
     Dosage: UNK
     Dates: start: 20020101
  5. ACETYLSALICYLIC ACID SRT [Concomitant]
     Dosage: UNK
     Dates: start: 20040101
  6. TRICLOSAN [Concomitant]
     Dosage: UNK
  7. FLUTICASONE/SALMETEROL [Concomitant]
     Dosage: UNK
  8. CETIRIZINE HYDROCHLORIDE [Concomitant]
     Dosage: UNK

REACTIONS (2)
  - MUSCLE SPASMS [None]
  - MYALGIA [None]
